FAERS Safety Report 15651763 (Version 1)
Quarter: 2018Q4

REPORT INFORMATION
  Report Type: Report from Study
  Country: EG (occurrence: EG)
  Receive Date: 20181123
  Receipt Date: 20181123
  Transmission Date: 20190205
  Serious: Yes (Other)
  Sender: FDA-Public Use
  Company Number: PHHY2018EG160455

PATIENT
  Age: 11 Year
  Sex: Male

DRUGS (4)
  1. OMNITROPE [Suspect]
     Active Substance: SOMATROPIN
     Indication: EPILEPSY
  2. OMNITROPE [Suspect]
     Active Substance: SOMATROPIN
     Indication: AMNESIA
  3. CALCIUM [Concomitant]
     Active Substance: CALCIUM
     Indication: PRODUCT USED FOR UNKNOWN INDICATION
     Route: 065
  4. OMNITROPE [Suspect]
     Active Substance: SOMATROPIN
     Indication: GROWTH HORMONE DEFICIENCY
     Dosage: 0.6 MG, QD
     Route: 058
     Dates: start: 20180716

REACTIONS (6)
  - Nervousness [Not Recovered/Not Resolved]
  - Incorrect dose administered [Unknown]
  - Cough [Unknown]
  - Immune system disorder [Unknown]
  - Wrong technique in device usage process [Unknown]
  - Pneumonia [Unknown]

NARRATIVE: CASE EVENT DATE: 20181107
